FAERS Safety Report 5667960-2 (Version None)
Quarter: 2008Q1

REPORT INFORMATION
  Report Type: 
  Country: None (occurrence: None)
  Receive Date: 20080315
  Receipt Date: 20080207
  Transmission Date: 20080703
  Serious: No
  Sender: FDA-Public Use
  Company Number: US-ABBOTT-08P-163-0437669-00

PATIENT
  Sex: Female
  Weight: 48.124 kg

DRUGS (6)
  1. HUMIRA [Suspect]
     Indication: CROHN'S DISEASE
     Route: 058
     Dates: start: 20080125, end: 20080125
  2. HUMIRA [Suspect]
     Route: 058
     Dates: start: 20080208
  3. HUMIRA [Suspect]
     Route: 058
  4. MESALAMINE [Concomitant]
     Indication: DRUG USE FOR UNKNOWN INDICATION
  5. MERCAPTOPURINE [Concomitant]
     Indication: DRUG USE FOR UNKNOWN INDICATION
  6. PURENTHOL [Concomitant]
     Indication: DRUG USE FOR UNKNOWN INDICATION

REACTIONS (2)
  - COUGH [None]
  - PHARYNGOLARYNGEAL PAIN [None]
